FAERS Safety Report 17737481 (Version 1)
Quarter: 2020Q2

REPORT INFORMATION
  Report Type: Spontaneous
  Country: ES (occurrence: ES)
  Receive Date: 20200504
  Receipt Date: 20200504
  Transmission Date: 20200714
  Serious: Yes (Hospitalization)
  Sender: FDA-Public Use
  Company Number: ES-ROCHE-2593196

PATIENT
  Age: 16 Year
  Sex: Male

DRUGS (1)
  1. XOLAIR [Suspect]
     Active Substance: OMALIZUMAB
     Indication: ANAPHYLAXIS PROPHYLAXIS
     Dosage: 600 MG (PER 15 DAYS)
     Route: 058
     Dates: start: 20190303, end: 20190801

REACTIONS (2)
  - Extradural abscess [Recovering/Resolving]
  - Fusobacterium infection [Recovering/Resolving]

NARRATIVE: CASE EVENT DATE: 20190801
